FAERS Safety Report 4420848-7 (Version None)
Quarter: 2004Q3

REPORT INFORMATION
  Report Type: 
  Country: None (occurrence: None)
  Receive Date: 20040809
  Receipt Date: 20040728
  Transmission Date: 20050211
  Serious: Yes (Other)
  Sender: FDA-Public Use
  Company Number: 200412443JP

PATIENT
  Sex: 0

DRUGS (2)
  1. AMARYL [Suspect]
     Route: 048
  2. LASIX [Suspect]

REACTIONS (2)
  - BLOOD POTASSIUM INCREASED [None]
  - LABORATORY TEST INTERFERENCE [None]
